FAERS Safety Report 5521555-X (Version None)
Quarter: 2007Q4

REPORT INFORMATION
  Report Type: 
  Country: None (occurrence: None)
  Receive Date: 20071120
  Receipt Date: 20071112
  Transmission Date: 20080405
  Serious: Yes (Hospitalization)
  Sender: FDA-Public Use
  Company Number: FR-WYE-G00594307

PATIENT
  Sex: Female

DRUGS (2)
  1. ADVIL LIQUI-GELS [Suspect]
     Indication: TOOTH ABSCESS
     Dosage: UNSPECIFIED
     Route: 048
     Dates: start: 20070527, end: 20070527
  2. BIRODOGYL [Suspect]
     Indication: TOOTH ABSCESS
     Dosage: UNSPECIFIED
     Route: 048
     Dates: start: 20070528, end: 20070528

REACTIONS (5)
  - ACUTE GENERALISED EXANTHEMATOUS PUSTULOSIS [None]
  - HYPERAESTHESIA [None]
  - ORAL FUNGAL INFECTION [None]
  - ORAL HERPES [None]
  - PRURITUS [None]
